FAERS Safety Report 22037711 (Version 2)
Quarter: 2023Q1

REPORT INFORMATION
  Report Type: Spontaneous
  Country: PT (occurrence: PT)
  Receive Date: 20230227
  Receipt Date: 20230309
  Transmission Date: 20230417
  Serious: Yes (Life-Threatening, Other)
  Sender: FDA-Public Use
  Company Number: PT-002147023-NVSC2023PT040098

PATIENT
  Age: 82 Year
  Sex: Female

DRUGS (1)
  1. GLYCOPYRRONIUM\INDACATEROL [Suspect]
     Active Substance: GLYCOPYRRONIUM\INDACATEROL
     Indication: Respiratory disorder
     Dosage: 1 DOSAGE FORM, QD (1 DOSE IN THE MORNING EVERY DAY)
     Dates: start: 20230209, end: 20230220

REACTIONS (10)
  - Arrhythmia [Recovered/Resolved]
  - Peripheral swelling [Recovered/Resolved]
  - Nasopharyngitis [Recovered/Resolved]
  - Hypothermia [Recovered/Resolved]
  - Vision blurred [Unknown]
  - Nail discolouration [Recovered/Resolved]
  - Tongue discolouration [Unknown]
  - Oropharyngeal pain [Recovered/Resolved]
  - Oropharyngeal pain [Recovered/Resolved]
  - Peripheral coldness [Not Recovered/Not Resolved]

NARRATIVE: CASE EVENT DATE: 20230201
